FAERS Safety Report 8625029-9 (Version None)
Quarter: 2012Q3

REPORT INFORMATION
  Report Type: 
  Country: None (occurrence: None)
  Receive Date: 20120827
  Receipt Date: 20120815
  Transmission Date: 20120928
  Serious: Yes (Hospitalization, Other)
  Sender: FDA-Public Use
  Company Number: US-009507513-1104USA02929

PATIENT

DRUGS (10)
  1. FOSAMAX [Suspect]
     Indication: OSTEOPOROSIS
  2. LIPITOR [Concomitant]
     Indication: BLOOD CHOLESTEROL INCREASED
     Dosage: UNK
     Route: 048
     Dates: start: 20000901
  3. ASPIRIN [Concomitant]
  4. LISINOPRIL [Concomitant]
     Dosage: UNK
  5. FOSAMAX [Suspect]
     Indication: OSTEOPENIA
     Dosage: 35 MG, UNK
     Route: 048
     Dates: start: 20060827, end: 20070516
  6. FOSAMAX PLUS D [Suspect]
     Dosage: 70 MG, UNK
     Route: 048
     Dates: start: 20070516, end: 20090203
  7. IBUPROFEN [Concomitant]
  8. ZOFRAN [Concomitant]
  9. TEMAZEPAM [Concomitant]
  10. FOSAMAX PLUS D [Suspect]
     Dosage: 70 MG, UNK
     Route: 048
     Dates: start: 20090406, end: 20100201

REACTIONS (56)
  - APPENDICECTOMY [None]
  - DEAFNESS [None]
  - COLONOSCOPY [None]
  - INSOMNIA [None]
  - NEPHROLITHIASIS [None]
  - NASAL CONGESTION [None]
  - CHRONIC OBSTRUCTIVE PULMONARY DISEASE [None]
  - FRACTURE DELAYED UNION [None]
  - BLOOD URIC ACID INCREASED [None]
  - DEPRESSION [None]
  - CALCIUM DEFICIENCY [None]
  - VERTIGO [None]
  - GASTROOESOPHAGEAL REFLUX DISEASE [None]
  - DIZZINESS [None]
  - BRONCHITIS [None]
  - BLADDER PROLAPSE [None]
  - FEMUR FRACTURE [None]
  - INTERNAL FIXATION OF FRACTURE [None]
  - PAIN [None]
  - TRANSIENT ISCHAEMIC ATTACK [None]
  - HYPOTHYROIDISM [None]
  - CAROTID ARTERIOSCLEROSIS [None]
  - MALABSORPTION [None]
  - OSTEONECROSIS [None]
  - ANAEMIA POSTOPERATIVE [None]
  - BIOPSY ARTERY [None]
  - POLYMYALGIA RHEUMATICA [None]
  - DIVERTICULITIS [None]
  - CARTILAGE INJURY [None]
  - SINUS TACHYCARDIA [None]
  - OSTEOMALACIA [None]
  - MENISCUS REMOVAL [None]
  - FRACTURE NONUNION [None]
  - DYSPEPSIA [None]
  - NAUSEA [None]
  - CATARACT OPERATION [None]
  - OSTEOARTHRITIS [None]
  - BONE METABOLISM DISORDER [None]
  - CONTUSION [None]
  - DIVERTICULUM [None]
  - DRUG INEFFECTIVE [None]
  - SPINAL OSTEOARTHRITIS [None]
  - VITAMIN D DECREASED [None]
  - BURSITIS [None]
  - MACULAR DEGENERATION [None]
  - CHEST PAIN [None]
  - HYPERCALCAEMIA [None]
  - EXOSTOSIS [None]
  - COUGH [None]
  - HAEMORRHOIDS [None]
  - MEDICAL DEVICE REMOVAL [None]
  - HYPERTENSION [None]
  - EYE DISORDER [None]
  - FALL [None]
  - ANXIETY [None]
  - CONSTIPATION [None]
